FAERS Safety Report 6123058-0 (Version None)
Quarter: 2009Q1

REPORT INFORMATION
  Report Type: 
  Country: None (occurrence: None)
  Receive Date: 20090318
  Receipt Date: 20090309
  Transmission Date: 20090719
  Serious: Yes (Other)
  Sender: FDA-Public Use
  Company Number: AT-PFIZER INC-2009160283

PATIENT

DRUGS (2)
  1. DALACIN [Suspect]
     Indication: BURSITIS
     Dosage: UNK
     Dates: start: 20081005, end: 20081009
  2. AUGMENTIN [Suspect]
     Indication: BURSITIS
     Dosage: 550 MG, 3X/DAY
     Route: 042
     Dates: start: 20081003, end: 20081009

REACTIONS (1)
  - CHOLESTASIS [None]
